FAERS Safety Report 13542613 (Version 1)
Quarter: 2017Q2

REPORT INFORMATION
  Report Type: Spontaneous
  Country: US (occurrence: US)
  Receive Date: 20170512
  Receipt Date: 20170512
  Transmission Date: 20170830
  Serious: Yes (Other)
  Sender: FDA-Public Use
  Company Number: US-ROCHE-743162

PATIENT
  Sex: Female

DRUGS (3)
  1. BEVACIZUMAB [Suspect]
     Active Substance: BEVACIZUMAB
     Dosage: COMBINATION THERAPY WITH CARBOPLATINUM
     Route: 065
  2. CARBOPLATINUM [Suspect]
     Active Substance: CARBOPLATIN
     Indication: PSEUDOMYXOMA PERITONEI
     Dosage: IN COMBINATION WITH BEVACIZUMAB
     Route: 065
  3. BEVACIZUMAB [Suspect]
     Active Substance: BEVACIZUMAB
     Indication: PSEUDOMYXOMA PERITONEI
     Dosage: MONOTHERAPY
     Route: 065

REACTIONS (1)
  - Neuropathy peripheral [Unknown]
